FAERS Safety Report 6900295-6 (Version None)
Quarter: 2010Q3

REPORT INFORMATION
  Report Type: 
  Country: None (occurrence: None)
  Receive Date: 20100803
  Receipt Date: 20100719
  Transmission Date: 20110219
  Serious: Yes (Other)
  Sender: FDA-Public Use
  Company Number: PHHY2010IT48604

PATIENT
  Sex: Male

DRUGS (2)
  1. DESFERAL [Suspect]
     Indication: CHELATION THERAPY
     Dosage: 2500 MG, UNK
     Route: 058
     Dates: start: 20100609
  2. FERRIPROX [Concomitant]
     Indication: CHELATION THERAPY
     Dosage: 500 MG, UNK
     Route: 048

REACTIONS (1)
  - FOREIGN BODY REACTION [None]
